FAERS Safety Report 9139605 (Version 1)
Quarter: 2013Q1

REPORT INFORMATION
  Report Type: Report from Study
  Country: CA (occurrence: CA)
  Receive Date: 20130305
  Receipt Date: 20130305
  Transmission Date: 20140127
  Serious: Yes (Other)
  Sender: FDA-Public Use
  Company Number: CA-JNJFOC-20130216967

PATIENT
  Age: 59 Year
  Sex: Male
  Weight: 119 kg

DRUGS (4)
  1. REMICADE [Suspect]
     Indication: CROHN^S DISEASE
     Route: 042
     Dates: start: 20120925
  2. NIFEDIPINE [Concomitant]
     Route: 065
  3. CANDESARTAN [Concomitant]
     Route: 065
  4. OTHER THERAPEUTICS [Concomitant]
     Indication: ASTHMA
     Dosage: WHEN NECESSARY
     Route: 048

REACTIONS (1)
  - Tooth extraction [Recovered/Resolved]
